FAERS Safety Report 14131538 (Version 1)
Quarter: 2017Q4

REPORT INFORMATION
  Report Type: Spontaneous
  Country: IT (occurrence: IT)
  Receive Date: 20171026
  Receipt Date: 20171026
  Transmission Date: 20180321
  Serious: Yes (Other)
  Sender: FDA-Public Use
  Company Number: IT-GILEAD-2017-0301123

PATIENT
  Age: 58 Year
  Sex: Male

DRUGS (5)
  1. VIREAD [Suspect]
     Active Substance: TENOFOVIR DISOPROXIL FUMARATE
     Dosage: 245 MG, Q48HR
     Route: 065
  2. TACROLIMUS. [Concomitant]
     Active Substance: TACROLIMUS
  3. VIREAD [Suspect]
     Active Substance: TENOFOVIR DISOPROXIL FUMARATE
     Dosage: 245 MG, QD
     Route: 065
  4. EVEROLIMUS. [Concomitant]
     Active Substance: EVEROLIMUS
  5. VIREAD [Suspect]
     Active Substance: TENOFOVIR DISOPROXIL FUMARATE
     Indication: HEPATITIS B
     Dosage: 245 MG, Q48HR
     Route: 065

REACTIONS (5)
  - Kidney fibrosis [Unknown]
  - Renal tubular atrophy [Unknown]
  - Proteinuria [Recovering/Resolving]
  - Renal vessel disorder [Unknown]
  - Renal impairment [Not Recovered/Not Resolved]
